FAERS Safety Report 22916700 (Version 3)
Quarter: 2023Q4

REPORT INFORMATION
  Report Type: Spontaneous
  Country: US (occurrence: US)
  Receive Date: 20230907
  Receipt Date: 20231016
  Transmission Date: 20240110
  Serious: Yes (Death)
  Sender: FDA-Public Use
  Company Number: US-PFIZER INC-PV202300151735

PATIENT
  Age: 86 Year
  Sex: Female
  Weight: 64.853 kg

DRUGS (1)
  1. IBRANCE [Suspect]
     Active Substance: PALBOCICLIB
     Indication: Breast cancer metastatic
     Dosage: 75 MG FOR 21 DAYS, 7 DAYS OFF
     Route: 048
     Dates: start: 20191122

REACTIONS (1)
  - Neoplasm progression [Fatal]
